FAERS Safety Report 14647956 (Version 2)
Quarter: 2018Q1

REPORT INFORMATION
  Report Type: Spontaneous
  Country: IT (occurrence: IT)
  Receive Date: 20180316
  Receipt Date: 20180322
  Transmission Date: 20180509
  Serious: Yes (Life-Threatening, Hospitalization, Other)
  Sender: FDA-Public Use
  Company Number: IT-AUROBINDO-AUR-APL-2018-013544

PATIENT
  Age: 40 Day
  Sex: Male
  Weight: 4.5 kg

DRUGS (3)
  1. LAMOTRIGINE. [Suspect]
     Active Substance: LAMOTRIGINE
     Dosage: 120 MILLIGRAM, UNK
     Route: 064
  2. LAMOTRIGINE. [Suspect]
     Active Substance: LAMOTRIGINE
     Indication: EPILEPSY
     Dosage: 150 MILLIGRAM, UNK
     Route: 063
  3. LAMOTRIGINE. [Suspect]
     Active Substance: LAMOTRIGINE
     Dosage: 200 MILLIGRAM, UNK
     Route: 064

REACTIONS (8)
  - Pallor [Recovered/Resolved]
  - Normochromic normocytic anaemia [Recovering/Resolving]
  - Foetal exposure during pregnancy [Recovered/Resolved]
  - Abdominal distension [Recovered/Resolved]
  - Maternal exposure during breast feeding [Recovered/Resolved]
  - Decreased appetite [Recovered/Resolved]
  - Neutropenia [Recovering/Resolving]
  - Mucosal discolouration [Recovered/Resolved]
